FAERS Safety Report 4423748-1 (Version None)
Quarter: 2004Q3

REPORT INFORMATION
  Report Type: 
  Country: None (occurrence: None)
  Receive Date: 20040806
  Receipt Date: 20040726
  Transmission Date: 20050211
  Serious: Yes (Death)
  Sender: FDA-Public Use
  Company Number: JP-JNJFOC-20040707228

PATIENT
  Age: 60 Year
  Sex: Male

DRUGS (4)
  1. FENTANYL [Suspect]
     Dosage: 2.5 MG, 1 IN 72 HOUR, TRANSDERMAL
     Route: 062
  2. MAGNESIUM OXIDE (MAGNESIUM OXIDE) [Concomitant]
  3. PANTETHINE (PANTETHINE) [Concomitant]
  4. SENOSIDE (SENNOSIDE A) [Concomitant]

REACTIONS (2)
  - DEPRESSED LEVEL OF CONSCIOUSNESS [None]
  - MALIGNANT NEOPLASM PROGRESSION [None]
